FAERS Safety Report 23215282 (Version 1)
Quarter: 2023Q4

REPORT INFORMATION
  Report Type: Spontaneous
  Country: CA (occurrence: CA)
  Receive Date: 20231122
  Receipt Date: 20231122
  Transmission Date: 20240110
  Serious: Yes (Other)
  Sender: FDA-Public Use
  Company Number: CA-ADVANZ PHARMA-202311010467

PATIENT
  Age: 59 Year
  Sex: Female

DRUGS (3)
  1. OCALIVA [Suspect]
     Active Substance: OBETICHOLIC ACID
     Indication: Primary biliary cholangitis
     Dosage: 5 MG, QD (OCALIVA IN THE MORNING AT BREAKFAST TIME)
     Route: 048
     Dates: start: 20220301
  2. URSO [Concomitant]
     Active Substance: URSODIOL
     Dosage: UNK, FROM APPROX 5 YEARS(AS PER PATIENT)
  3. FELODIPINE [Concomitant]
     Active Substance: FELODIPINE
     Indication: Raynaud^s phenomenon
     Dosage: UNK

REACTIONS (2)
  - Scleroderma [Unknown]
  - Condition aggravated [Unknown]
